FAERS Safety Report 24132293 (Version 2)
Quarter: 2024Q3

REPORT INFORMATION
  Report Type: Spontaneous
  Country: GB (occurrence: GB)
  Receive Date: 20240724
  Receipt Date: 20240729
  Transmission Date: 20241016
  Serious: No
  Sender: PFIZER
  Company Number: GB-PFIZER INC-PV202400095519

PATIENT
  Age: 87 Year
  Sex: Male

DRUGS (1)
  1. GENOTROPIN [Suspect]
     Active Substance: SOMATROPIN
     Dosage: UNK
     Route: 058

REACTIONS (3)
  - Fall [Unknown]
  - Device leakage [Unknown]
  - Device malfunction [Unknown]
